FAERS Safety Report 8765837 (Version 2)
Quarter: 2012Q4

REPORT INFORMATION
  Report Type: 
  Country: PL (occurrence: PL)
  Receive Date: 20120903
  Receipt Date: 20120911
  Transmission Date: 20130627
  Serious: Yes (Death, Hospitalization)
  Sender: FDA-Public Use
  Company Number: PL-AMGEN-POLSP2012039937

PATIENT
  Age: 73 Year
  Sex: Female
  Weight: 68 kg

DRUGS (6)
  1. ENBREL [Suspect]
     Indication: RHEUMATOID ARTHRITIS
     Dosage: 50 mg, weekly
     Route: 058
     Dates: start: 20111025, end: 20120501
  2. TRITACE [Concomitant]
     Dosage: UNK
  3. BISOCARD [Concomitant]
     Dosage: UNK
  4. METYPRED                           /00049601/ [Concomitant]
     Dosage: UNK
  5. DIAPREL [Concomitant]
     Dosage: UNK
  6. CALCIUM WITH VITAMIN D             /00944201/ [Concomitant]
     Dosage: UNK

REACTIONS (3)
  - Pulmonary oedema [Fatal]
  - Pneumonia [Recovering/Resolving]
  - Mycobacterium tuberculosis complex test positive [Unknown]
